FAERS Safety Report 13705704 (Version 1)
Quarter: 2017Q2

REPORT INFORMATION
  Report Type: Spontaneous
  Country: US (occurrence: US)
  Receive Date: 20170630
  Receipt Date: 20170630
  Transmission Date: 20170830
  Serious: Yes (Other)
  Sender: FDA-Public Use
  Company Number: US-ELI_LILLY_AND_COMPANY-US201706008881

PATIENT
  Sex: Female

DRUGS (1)
  1. HUMULIN 70/30 [Suspect]
     Active Substance: INSULIN HUMAN
     Indication: TYPE 2 DIABETES MELLITUS
     Dosage: UNK, UNKNOWN
     Route: 065
     Dates: start: 1992

REACTIONS (14)
  - Blindness unilateral [Unknown]
  - Chronic kidney disease [Unknown]
  - Diabetic retinopathy [Unknown]
  - Cardiac failure congestive [Unknown]
  - Blood cholesterol increased [Recovered/Resolved]
  - Eye oedema [Unknown]
  - Hypertension [Recovered/Resolved]
  - Rheumatoid arthritis [Unknown]
  - Fall [Unknown]
  - Psoriasis [Unknown]
  - Cellulitis [Unknown]
  - Diabetic neuropathy [Unknown]
  - Hypergammaglobulinaemia benign monoclonal [Unknown]
  - Psoriatic arthropathy [Unknown]
